FAERS Safety Report 7961832-6 (Version None)
Quarter: 2011Q4

REPORT INFORMATION
  Report Type: 
  Country: None (occurrence: None)
  Receive Date: 20111207
  Receipt Date: 20111207
  Transmission Date: 20120403
  Serious: Yes (Other)
  Sender: FDA-Public Use
  Company Number: None

PATIENT
  Sex: Female
  Weight: 76.657 kg

DRUGS (2)
  1. BUPIVACAINE SPINAL IN DEXTROSE [Concomitant]
     Dosage: 1.1 ML
     Route: 037
     Dates: start: 20111206, end: 20111206
  2. BUPIVACAINE SPINAL IN DEXTROSE [Suspect]
     Indication: CAESAREAN SECTION
     Dosage: 1.5 ML
     Route: 037
     Dates: start: 20111206, end: 20111206

REACTIONS (1)
  - DEVICE FAILURE [None]
